FAERS Safety Report 7898166-4 (Version None)
Quarter: 2011Q4

REPORT INFORMATION
  Report Type: 
  Country: None (occurrence: None)
  Receive Date: 20111028
  Receipt Date: 20110324
  Transmission Date: 20120403
  Serious: Yes (Life-Threatening)
  Sender: FDA-Public Use
  Company Number: PHHY2011US25598

PATIENT
  Sex: Female

DRUGS (1)
  1. LESCOL XL [Suspect]
     Dosage: 40 MG, ORAL, 80 MG, ORAL
     Route: 048

REACTIONS (1)
  - MALAISE [None]
